FAERS Safety Report 4823349-7 (Version None)
Quarter: 2005Q4

REPORT INFORMATION
  Report Type: 
  Country: None (occurrence: None)
  Receive Date: 20051107
  Receipt Date: 20051103
  Transmission Date: 20060501
  Serious: Yes (Other)
  Sender: FDA-Public Use
  Company Number: 2005-10-1041

PATIENT
  Sex: Female

DRUGS (5)
  1. PEG-INTRON (PEGINTERFERON ALFA-2B) REDIPEN [Suspect]
     Indication: HEPATITIS C
     Dosage: 150 MCG QWK SUBCUTANEOUS
     Route: 058
     Dates: start: 20041001, end: 20050801
  2. RIBAVIRIN [Suspect]
     Indication: HEPATITIS C
     Dosage: 1200 MG QD ORAL
     Route: 048
     Dates: start: 20041001, end: 20050801
  3. URSO [Concomitant]
  4. MILK THISTLE FRUIT [Concomitant]
  5. MULTI-VITAMINS [Concomitant]

REACTIONS (2)
  - LYMPHADENOPATHY [None]
  - UMBILICAL HERNIA [None]
